FAERS Safety Report 24973078 (Version 1)
Quarter: 2025Q1

REPORT INFORMATION
  Report Type: Spontaneous
  Country: BE (occurrence: BE)
  Receive Date: 20250216
  Receipt Date: 20250216
  Transmission Date: 20250408
  Serious: Yes (Hospitalization)
  Sender: AUROBINDO
  Company Number: BE-JUBILANT PHARMA LTD-2025BE000099

PATIENT
  Age: 23 Year
  Sex: Female

DRUGS (1)
  1. OLANZAPINE [Suspect]
     Active Substance: OLANZAPINE
     Indication: Delusional disorder, erotomanic type
     Route: 065

REACTIONS (2)
  - Delusional disorder, erotomanic type [Unknown]
  - Drug ineffective [Not Recovered/Not Resolved]
